FAERS Safety Report 6458169-3 (Version None)
Quarter: 2009Q4

REPORT INFORMATION
  Report Type: 
  Country: None (occurrence: None)
  Receive Date: 20091125
  Receipt Date: 20091117
  Transmission Date: 20100525
  Serious: Yes (Other)
  Sender: FDA-Public Use
  Company Number: BR-WYE-H12360309

PATIENT
  Age: 74 Year
  Sex: Female

DRUGS (8)
  1. AMIODARONE HCL [Suspect]
     Route: 048
  2. LEVOTHYROXINE [Concomitant]
  3. AMANTADINE HYDROCHLORIDE [Concomitant]
  4. TRIMETAZIDINE [Concomitant]
  5. BENSERAZIDE HYDROCHLORIDE/LEVODOPA [Concomitant]
     Dosage: 650+150 MG DAILY
  6. BIPERIDEN HYDROCHLORIDE TAB [Concomitant]
  7. FLUNARIZINE [Suspect]
     Route: 048
  8. CAPTOPRIL [Concomitant]

REACTIONS (1)
  - PROGRESSIVE SUPRANUCLEAR PALSY [None]
